FAERS Safety Report 9084947 (Version 1)
Quarter: 2013Q1

REPORT INFORMATION
  Report Type: Spontaneous
  Country: PR (occurrence: PR)
  Receive Date: 20130130
  Receipt Date: 20130130
  Transmission Date: 20140127
  Serious: No
  Sender: FDA-Public Use
  Company Number: PR-ABBOTT-12P-131-0988794-00

PATIENT
  Sex: Female
  Weight: 71.28 kg

DRUGS (5)
  1. HUMIRA [Suspect]
     Indication: RHEUMATOID ARTHRITIS
     Route: 058
     Dates: start: 2011, end: 201208
  2. PLAQUENIL [Concomitant]
     Indication: RHEUMATOID ARTHRITIS
     Route: 048
  3. CYMBALTA [Concomitant]
     Indication: RHEUMATOID ARTHRITIS
     Dosage: DAILY
     Route: 048
  4. ZANTAC [Concomitant]
     Indication: GASTRITIS
     Dosage: TWICE DAILY
     Route: 048
  5. ZANTAC [Concomitant]
     Indication: HIATUS HERNIA

REACTIONS (1)
  - Drug ineffective [Not Recovered/Not Resolved]
